FAERS Safety Report 6814673-7 (Version None)
Quarter: 2010Q2

REPORT INFORMATION
  Report Type: 
  Country: None (occurrence: None)
  Receive Date: 20100629
  Receipt Date: 20100621
  Transmission Date: 20101027
  Serious: Yes (Death)
  Sender: FDA-Public Use
  Company Number: 008849

PATIENT
  Age: 81 Year
  Sex: Male
  Weight: 90 kg

DRUGS (5)
  1. MACUGEN [Suspect]
     Dosage: 0.3 MG, EVERY 6 WEEKS, INTRAOCULAR
     Route: 031
     Dates: start: 20090714, end: 20100415
  2. LUSOPRESS (NITRENDIPINE) [Concomitant]
  3. TENOLOC (ELIPROLOL HYDROCHLORIDE) [Concomitant]
  4. AMILORIDE HCL W/HYDROCHLOROTHIAZIDE (AMILORIDE HYDROCHLORIDE, HYDROCHL [Concomitant]
  5. WARFARIN SODIUM [Concomitant]

REACTIONS (1)
  - DEATH [None]
